FAERS Safety Report 18376919 (Version 1)
Quarter: 2020Q4

REPORT INFORMATION
  Report Type: Spontaneous
  Country: US (occurrence: US)
  Receive Date: 20201009
  Receipt Date: 20201009
  Transmission Date: 20210114
  Serious: No
  Sender: FDA-Public Use
  Company Number: None

PATIENT
  Age: 53 Year
  Sex: Female
  Weight: 94.35 kg

DRUGS (1)
  1. GLATIRAMTER 40MG/ML SYR [Suspect]
     Active Substance: GLATIRAMER
     Indication: MULTIPLE SCLEROSIS
     Dates: start: 20190215, end: 20191127

REACTIONS (7)
  - Mental disorder [None]
  - Hypersensitivity [None]
  - Lipoatrophy [None]
  - SARS-CoV-2 test negative [None]
  - Chest pain [None]
  - Discomfort [None]
  - Depressed level of consciousness [None]

NARRATIVE: CASE EVENT DATE: 20191127
